FAERS Safety Report 8017648-8 (Version None)
Quarter: 2012Q1

REPORT INFORMATION
  Report Type: 
  Country: None (occurrence: None)
  Receive Date: 20120103
  Receipt Date: 20111220
  Transmission Date: 20120608
  Serious: Yes (Other)
  Sender: FDA-Public Use
  Company Number: CA-JNJFOC-20111212510

PATIENT
  Sex: Male
  Weight: 73 kg

DRUGS (6)
  1. REMICADE [Suspect]
     Indication: CROHN'S DISEASE
     Route: 042
     Dates: start: 20111025
  2. METHOTREXATE [Concomitant]
  3. DIAZEPAM [Concomitant]
     Dosage: AT BEDTIME AND AS NEEDED
  4. FOLIC ACID [Concomitant]
     Dosage: GIVEN EVERY DAY EXCEPT SUNDAYS
  5. REMICADE [Suspect]
     Route: 042
     Dates: start: 20110101
  6. IMODIUM [Concomitant]
     Dosage: DOSE: 3 TABLETS

REACTIONS (3)
  - OESOPHAGEAL STENOSIS [None]
  - THROMBOSIS [None]
  - HAEMOGLOBIN DECREASED [None]
